FAERS Safety Report 8624838-X (Version None)
Quarter: 2012Q3

REPORT INFORMATION
  Report Type: 
  Country: None (occurrence: None)
  Receive Date: 20120827
  Receipt Date: 20120817
  Transmission Date: 20120928
  Serious: Yes (Hospitalization)
  Sender: FDA-Public Use
  Company Number: US-009507513-1208USA008083

PATIENT

DRUGS (3)
  1. PEGASYS [Concomitant]
     Indication: HEPATITIS C
  2. VICTRELIS [Suspect]
     Dosage: 200 MG, TID
     Route: 048
     Dates: start: 20111201, end: 20120529
  3. RIBAVIRIN [Concomitant]
     Indication: HEPATITIS C

REACTIONS (6)
  - KIDNEY INFECTION [None]
  - ALOPECIA [None]
  - HYPERSENSITIVITY [None]
  - ANAPHYLACTIC REACTION [None]
  - NEUTROPENIA [None]
  - DRUG INEFFECTIVE [None]
